FAERS Safety Report 9192759 (Version 2)
Quarter: 2013Q4

REPORT INFORMATION
  Report Type: Spontaneous
  Country: CA (occurrence: CA)
  Receive Date: 20130327
  Receipt Date: 20131223
  Transmission Date: 20140711
  Serious: Yes (Death)
  Sender: FDA-Public Use
  Company Number: CA-PFIZER INC-2013095913

PATIENT
  Age: 61 Year
  Sex: Male

DRUGS (2)
  1. INLYTA [Suspect]
     Indication: RENAL CELL CARCINOMA
     Dosage: 5 MG, 2X/DAY, CYCLE 1
     Dates: start: 20121222
  2. INLYTA [Suspect]
     Dosage: 3 MG, 2X/DAY, CYCLE 2-3

REACTIONS (1)
  - Death [Fatal]
